FAERS Safety Report 13291575 (Version 12)
Quarter: 2021Q3

REPORT INFORMATION
  Report Type: Spontaneous
  Country: US (occurrence: US)
  Receive Date: 20170303
  Receipt Date: 20210721
  Transmission Date: 20211014
  Serious: Yes (Hospitalization, Other)
  Sender: FDA-Public Use
  Company Number: US-ASTELLAS-2017US003730

PATIENT
  Age: 55 Year
  Sex: Female

DRUGS (31)
  1. PROGRAF [Interacting]
     Active Substance: TACROLIMUS
     Dosage: 0.5 MG, TWICE DAILY
     Route: 048
  2. PROGRAF [Interacting]
     Active Substance: TACROLIMUS
     Route: 048
  3. NORVASC [Suspect]
     Active Substance: AMLODIPINE BESYLATE
     Indication: BLOOD PRESSURE MEASUREMENT
     Dosage: UNK UNK, UNKNOWN FREQ.
     Route: 065
     Dates: start: 201708
  4. ZOFRAN [Suspect]
     Active Substance: ONDANSETRON HYDROCHLORIDE
     Indication: ABDOMINAL DISCOMFORT
     Route: 065
  5. PHENERGAN [Suspect]
     Active Substance: PROMETHAZINE HYDROCHLORIDE
     Indication: PRODUCT USED FOR UNKNOWN INDICATION
     Dosage: UNK UNK, UNKNOWN FREQ.
     Route: 065
  6. NADOLOL. [Concomitant]
     Active Substance: NADOLOL
     Indication: PRODUCT USED FOR UNKNOWN INDICATION
     Route: 065
  7. PANTOPRAZOLE [Concomitant]
     Active Substance: PANTOPRAZOLE
     Indication: GASTRIC DISORDER
     Dosage: 40 MG, AS NEEDED (SOMETIMES 1/2 TABLET)
     Route: 065
  8. TACROLIMUS. [Suspect]
     Active Substance: TACROLIMUS
     Indication: LIVER TRANSPLANT
     Dosage: UNK, UNKNOWN FREQ.
     Route: 065
     Dates: start: 201708, end: 201708
  9. MAGNESIUM OXIDE. [Concomitant]
     Active Substance: MAGNESIUM OXIDE
     Route: 065
  10. PROGRAF [Suspect]
     Active Substance: TACROLIMUS
     Indication: LIVER TRANSPLANT
     Dosage: UNK, UNKNOWN FREQ.
     Route: 048
     Dates: start: 201009
  11. ASA [Concomitant]
     Active Substance: ASPIRIN
     Indication: PRODUCT USED FOR UNKNOWN INDICATION
     Route: 065
  12. DOCUSATE [Concomitant]
     Active Substance: DOCUSATE
     Indication: PRODUCT USED FOR UNKNOWN INDICATION
     Dosage: UNK UNK, ONCE DAILY
     Route: 065
  13. PROGRAF [Interacting]
     Active Substance: TACROLIMUS
     Dosage: 1.5 MG, ONCE DAILY (1MG IN AM AND 0.5 IN PM)
     Route: 048
  14. FLUCONAZOLE. [Interacting]
     Active Substance: FLUCONAZOLE
     Indication: FUNGAL INFECTION
     Dosage: UNK UNK, UNKNOWN FREQ.
     Route: 065
  15. XIFAXAN [Concomitant]
     Active Substance: RIFAXIMIN
     Indication: PRODUCT USED FOR UNKNOWN INDICATION
     Route: 065
  16. LACTULOSE. [Concomitant]
     Active Substance: LACTULOSE
     Indication: PRODUCT USED FOR UNKNOWN INDICATION
     Route: 065
  17. PROTONIX [Concomitant]
     Active Substance: PANTOPRAZOLE SODIUM
     Indication: PRODUCT USED FOR UNKNOWN INDICATION
     Route: 065
  18. OXYCODONE [Concomitant]
     Active Substance: OXYCODONE
     Indication: PRODUCT USED FOR UNKNOWN INDICATION
     Route: 065
  19. MAGNESIUM OXIDE. [Concomitant]
     Active Substance: MAGNESIUM OXIDE
     Indication: PRODUCT USED FOR UNKNOWN INDICATION
     Dosage: 400 MG, ONCE DAILY (AFTERNOON)
     Route: 065
  20. RIFAXIN [Concomitant]
     Indication: PRODUCT USE IN UNAPPROVED INDICATION
     Dosage: 550 MG, TWICE DAILY (8 AM AND 8 PM)
     Route: 065
  21. PROGRAF [Interacting]
     Active Substance: TACROLIMUS
     Dosage: 0.5 MG, TWICE DAILY
     Route: 048
  22. ALPRAZOLAM. [Concomitant]
     Active Substance: ALPRAZOLAM
     Indication: PRODUCT USED FOR UNKNOWN INDICATION
     Dosage: CUT INTO FOURTHS 1MG, UNKNOWN FREQ.
     Route: 065
  23. VIMPAT [Concomitant]
     Active Substance: LACOSAMIDE
     Indication: PRODUCT USED FOR UNKNOWN INDICATION
     Route: 065
  24. XANAX [Concomitant]
     Active Substance: ALPRAZOLAM
     Indication: PRODUCT USED FOR UNKNOWN INDICATION
     Route: 065
  25. ONDANSETRON [Concomitant]
     Active Substance: ONDANSETRON
     Indication: NAUSEA
     Dosage: 1/2 TABLET IF NEEDED
     Route: 065
  26. PROGRAF [Interacting]
     Active Substance: TACROLIMUS
     Route: 048
  27. QUETIAPINE. [Suspect]
     Active Substance: QUETIAPINE
     Indication: PRODUCT USED FOR UNKNOWN INDICATION
     Route: 048
     Dates: start: 201709
  28. COMPAZINE [Suspect]
     Active Substance: PROCHLORPERAZINE MALEATE
     Indication: PRODUCT USED FOR UNKNOWN INDICATION
     Dosage: UNK UNK, UNKNOWN FREQ.
     Route: 065
  29. PRAVASTATIN. [Concomitant]
     Active Substance: PRAVASTATIN
     Indication: PRODUCT USED FOR UNKNOWN INDICATION
     Dosage: 20 MG, ONCE DAILY (PM)
     Route: 065
  30. PROGRAF [Interacting]
     Active Substance: TACROLIMUS
     Dosage: 2 MG, TWICE DAILY (2MG IN MORNING 2 MG NIGHT)
     Route: 048
  31. PROGRAF [Interacting]
     Active Substance: TACROLIMUS
     Dosage: 2 MG IN MORNING 1 MG NIGHT, TWICE DAILY
     Route: 048
     Dates: start: 20191007

REACTIONS (36)
  - Respiratory arrest [Unknown]
  - Blood sodium decreased [Recovered/Resolved]
  - Immunosuppressant drug level decreased [Unknown]
  - Hypopnoea [Unknown]
  - Glomerular filtration rate decreased [Unknown]
  - Gastrointestinal scarring [Unknown]
  - Constipation [Not Recovered/Not Resolved]
  - Tardive dyskinesia [Unknown]
  - Pneumonia aspiration [Unknown]
  - Haemoglobin decreased [Unknown]
  - Fluid overload [Recovered/Resolved]
  - Hepatic failure [Unknown]
  - Electrocardiogram QT prolonged [Recovered/Resolved]
  - Haematocrit decreased [Unknown]
  - Asthenia [Unknown]
  - Off label use [Unknown]
  - Blood potassium decreased [Recovered/Resolved]
  - Blood pressure increased [Unknown]
  - Myocardial infarction [Recovered/Resolved]
  - Ulcer [Unknown]
  - Decubitus ulcer [Unknown]
  - Blood sodium decreased [Unknown]
  - Dry mouth [Unknown]
  - Flatulence [Not Recovered/Not Resolved]
  - Pneumothorax [Unknown]
  - Cough [Unknown]
  - Drug interaction [Unknown]
  - Blood magnesium decreased [Recovered/Resolved]
  - Blood creatinine increased [Recovered/Resolved]
  - Acute kidney injury [Unknown]
  - Skin disorder [Recovering/Resolving]
  - Abdominal discomfort [Unknown]
  - Fungal skin infection [Recovered/Resolved]
  - Dysphonia [Unknown]
  - Hypersensitivity [Unknown]
  - Confusional state [Unknown]

NARRATIVE: CASE EVENT DATE: 20131127
